FAERS Safety Report 7148083-2 (Version None)
Quarter: 2010Q4

REPORT INFORMATION
  Report Type: 
  Country: None (occurrence: None)
  Receive Date: 20101209
  Receipt Date: 20100414
  Transmission Date: 20110411
  Serious: Yes (Other)
  Sender: FDA-Public Use
  Company Number: US-ABBOTT-10P-163-0638784-00

PATIENT
  Age: 48 Year
  Sex: Male
  Weight: 111.23 kg

DRUGS (3)
  1. VICODIN ES [Suspect]
     Indication: PAIN
     Dosage: 7.5/750 MG
     Route: 048
     Dates: start: 20100406, end: 20100407
  2. VICODIN ES [Suspect]
     Indication: OSTEOARTHRITIS
  3. VICODIN ES [Suspect]
     Indication: KNEE OPERATION

REACTIONS (1)
  - HYPERSENSITIVITY [None]
